FAERS Safety Report 9061497 (Version 1)
Quarter: 2013Q1

REPORT INFORMATION
  Report Type: Spontaneous
  Country: US (occurrence: None)
  Receive Date: 20130211
  Receipt Date: 20130211
  Transmission Date: 20140127
  Serious: Yes (Other)
  Sender: FDA-Public Use
  Company Number: None

PATIENT
  Age: 40 Year
  Sex: Female
  Weight: 60 kg

DRUGS (1)
  1. LAMOTRIGINE [Suspect]
     Indication: MIGRAINE
     Dosage: 2 TABLETS EVERY EVENING
     Route: 048
     Dates: start: 20130123, end: 20130206

REACTIONS (3)
  - Insomnia [None]
  - Headache [None]
  - Product substitution issue [None]
